FAERS Safety Report 6197291-6 (Version None)
Quarter: 2009Q2

REPORT INFORMATION
  Report Type: 
  Country: None (occurrence: None)
  Receive Date: 20090521
  Receipt Date: 20090515
  Transmission Date: 20091009
  Serious: Yes (Disabling)
  Sender: FDA-Public Use
  Company Number: FR-JNJFOC-20090206302

PATIENT
  Age: 47 Year
  Sex: Female

DRUGS (5)
  1. TAVANIC [Suspect]
     Indication: BRONCHITIS
     Route: 048
  2. SOLUPRED [Suspect]
     Indication: BRONCHITIS
     Route: 048
  3. SALBUTAMOL [Concomitant]
     Indication: EMPHYSEMA
     Route: 055
  4. SPIRIVA [Concomitant]
     Indication: EMPHYSEMA
     Dosage: 1U SPRAY
     Route: 055
  5. SYMBICORT [Concomitant]
     Indication: EMPHYSEMA
     Route: 055

REACTIONS (4)
  - DEPRESSION [None]
  - TENDON RUPTURE [None]
  - TENDONITIS [None]
  - WALKING DISABILITY [None]
